FAERS Safety Report 9226824 (Version 1)
Quarter: 2013Q2

REPORT INFORMATION
  Report Type: Spontaneous
  Country: US (occurrence: None)
  Receive Date: 20130410
  Receipt Date: 20130410
  Transmission Date: 20140414
  Serious: Yes (Other)
  Sender: FDA-Public Use
  Company Number: DSU-2013-02691

PATIENT
  Age: 57 Year
  Sex: Female
  Weight: 104.33 kg

DRUGS (7)
  1. BENICAR [Suspect]
     Indication: HYPERTENSION
     Dosage: PER ORAL
     Route: 048
     Dates: start: 2007, end: 201208
  2. BENICAR [Suspect]
     Indication: HYPERTENSION
     Dosage: 20 MG (20 MG, QD) , PER ORAL
     Route: 048
     Dates: start: 2007, end: 201208
  3. POTASSIUM CITRATE (POTASSIUM CITRATE) (POTASSIUM CITRATE) [Concomitant]
  4. SINGULAIR (MONTELUKAST)  (MONTELUKAST) [Concomitant]
  5. ASTEPRO NASAL SPRAY (AZELASTINE) (AZELASTINE) [Concomitant]
  6. PROAIR (FLUTICASONE PROPIONATE) (FLUTICASONE PROPIONATE) [Concomitant]
  7. ASMANEX [Concomitant]

REACTIONS (1)
  - Nephrolithiasis [None]
